FAERS Safety Report 8434697-6 (Version None)
Quarter: 2012Q2

REPORT INFORMATION
  Report Type: 
  Country: None (occurrence: None)
  Receive Date: 20120323
  Receipt Date: 20110815
  Transmission Date: 20120825
  Serious: Yes (Hospitalization)
  Sender: FDA-Public Use
  Company Number: 163-21880-11070572

PATIENT
  Age: 63 Year
  Sex: Male
  Weight: 95.709 kg

DRUGS (3)
  1. REVLIMID [Suspect]
     Indication: MULTIPLE MYELOMA
     Dosage: 25 MG, 1 IN 1 D, PO   15-5MG, DAILY, PO
     Route: 048
     Dates: start: 20101001
  2. REVLIMID [Suspect]
     Indication: MULTIPLE MYELOMA
     Dosage: 25 MG, 1 IN 1 D, PO   15-5MG, DAILY, PO
     Route: 048
     Dates: start: 20100326
  3. PLAVIX [Concomitant]

REACTIONS (1)
  - DYSPNOEA [None]
